FAERS Safety Report 24615155 (Version 1)
Quarter: 2024Q4

REPORT INFORMATION
  Report Type: Spontaneous
  Country: ZA (occurrence: ZA)
  Receive Date: 20241113
  Receipt Date: 20241113
  Transmission Date: 20250115
  Serious: Yes (Other)
  Sender: PFIZER
  Company Number: ZA-PFIZER INC-PV202400146353

PATIENT
  Age: 11 Year
  Sex: Male

DRUGS (4)
  1. METHOTREXATE SODIUM [Suspect]
     Active Substance: METHOTREXATE SODIUM
     Indication: Juvenile idiopathic arthritis
     Dosage: 15 MG, WEEKLY
     Route: 058
     Dates: start: 202205
  2. ETORICOXIB [Suspect]
     Active Substance: ETORICOXIB
     Indication: Juvenile idiopathic arthritis
     Dosage: 60 MG, DAILY
     Dates: start: 202205
  3. ADALIMUMAB [Concomitant]
     Active Substance: ADALIMUMAB
     Indication: Juvenile idiopathic arthritis
     Dosage: 40 MG
     Dates: start: 202305
  4. PREDNISONE [Concomitant]
     Active Substance: PREDNISONE
     Indication: Juvenile idiopathic arthritis
     Dosage: 20 MG, DAILY
     Dates: start: 202304, end: 202305

REACTIONS (5)
  - Idiopathic intracranial hypertension [Unknown]
  - Iridocyclitis [Unknown]
  - Disease recurrence [Unknown]
  - Condition aggravated [Unknown]
  - Off label use [Unknown]

NARRATIVE: CASE EVENT DATE: 20220501
